FAERS Safety Report 8374291-9 (Version None)
Quarter: 2012Q2

REPORT INFORMATION
  Report Type: 
  Country: None (occurrence: None)
  Receive Date: 20120521
  Receipt Date: 20120516
  Transmission Date: 20120825
  Serious: Yes (Other)
  Sender: FDA-Public Use
  Company Number: PHHY2012JP016682

PATIENT
  Age: 77 Year
  Sex: Male
  Weight: 70 kg

DRUGS (11)
  1. MAGMITT KENEI [Concomitant]
     Dosage: 1980 MG, UNK
     Route: 048
     Dates: start: 20110112, end: 20120112
  2. EXJADE [Suspect]
     Indication: IRON OVERLOAD
     Dosage: 500 MG, QW3
     Route: 048
     Dates: start: 20110112, end: 20110921
  3. RED BLOOD CELLS, CONCENTRATED [Concomitant]
     Dosage: 2 UNITS EVERY 5 WEEKS
     Dates: start: 20110519, end: 20120112
  4. NEORAL [Suspect]
     Indication: APLASTIC ANAEMIA
     Dosage: 300 MG, DAILY
     Route: 048
     Dates: start: 20110112, end: 20110216
  5. NEORAL [Suspect]
     Dosage: 250 MG, DAILY
     Route: 048
     Dates: start: 20110217, end: 20110420
  6. ALLOPURINOL [Concomitant]
     Dosage: 100 MG, UNK
     Route: 048
     Dates: start: 20110518, end: 20120112
  7. RED BLOOD CELLS, CONCENTRATED [Concomitant]
     Dosage: 2 UNITS EVERY 4 WEEKS
     Dates: start: 20101225, end: 20110518
  8. EXJADE [Suspect]
     Dosage: 500 MG, QW5
     Route: 048
     Dates: start: 20110921, end: 20120112
  9. NEORAL [Suspect]
     Dosage: 200 MG,DAILY
     Route: 048
     Dates: start: 20110421, end: 20120112
  10. GASMOTIN [Concomitant]
     Dosage: 15 MG, UNK
     Route: 048
     Dates: start: 20110112, end: 20120112
  11. LASIX [Concomitant]
     Dosage: 20 MG, UNK
     Route: 048
     Dates: start: 20110112, end: 20120112

REACTIONS (3)
  - DISEASE PROGRESSION [None]
  - RENAL IMPAIRMENT [None]
  - HYPERURICAEMIA [None]
